FAERS Safety Report 4712000-2 (Version None)
Quarter: 2005Q3

REPORT INFORMATION
  Report Type: 
  Country: None (occurrence: None)
  Receive Date: 20050706
  Receipt Date: 20050429
  Transmission Date: 20060218
  Serious: Yes (Hospitalization)
  Sender: FDA-Public Use
  Company Number: US100438

PATIENT
  Age: 30 Year
  Sex: Female
  Weight: 54.5 kg

DRUGS (9)
  1. ARANESP [Suspect]
     Indication: RENAL FAILURE CHRONIC
     Dosage: 150 MCG, 1 IN 1 WEEKS, SC
     Route: 058
     Dates: start: 20030901
  2. FAMOTIDINE [Concomitant]
  3. ASPIRIN [Concomitant]
  4. TACROLIMUS [Concomitant]
  5. METHYLPREDNISOLONE 16MG TAB [Concomitant]
  6. ENALAPRAIL MALEATE [Concomitant]
  7. CLONIDINE [Concomitant]
  8. LABETALOL [Concomitant]
  9. MYCOPHENOLATE MOFETIL [Concomitant]

REACTIONS (1)
  - THERAPEUTIC RESPONSE DECREASED [None]
